FAERS Safety Report 14408754 (Version 1)
Quarter: 2018Q1

REPORT INFORMATION
  Report Type: Spontaneous
  Country: US (occurrence: US)
  Receive Date: 20180119
  Receipt Date: 20180119
  Transmission Date: 20180509
  Serious: No
  Sender: FDA-Public Use
  Company Number: US-JNJFOC-20170205850

PATIENT
  Age: 13 Year
  Sex: Male

DRUGS (14)
  1. RISPERDAL [Suspect]
     Active Substance: RISPERIDONE
     Indication: AGGRESSION
     Route: 048
     Dates: end: 201402
  2. RISPERDAL [Suspect]
     Active Substance: RISPERIDONE
     Indication: LEARNING DISABILITY
     Route: 048
     Dates: end: 201402
  3. RISPERIDONE. [Suspect]
     Active Substance: RISPERIDONE
     Indication: ATTENTION DEFICIT/HYPERACTIVITY DISORDER
     Route: 048
     Dates: start: 20090725, end: 20140227
  4. RISPERDAL [Suspect]
     Active Substance: RISPERIDONE
     Indication: IMPULSIVE BEHAVIOUR
     Route: 048
     Dates: start: 20090220, end: 20090609
  5. RISPERDAL [Suspect]
     Active Substance: RISPERIDONE
     Indication: ATTENTION DEFICIT/HYPERACTIVITY DISORDER
     Route: 048
     Dates: end: 201402
  6. RISPERDAL [Suspect]
     Active Substance: RISPERIDONE
     Indication: IMPULSIVE BEHAVIOUR
     Route: 048
     Dates: end: 201402
  7. RISPERIDONE. [Suspect]
     Active Substance: RISPERIDONE
     Indication: LEARNING DISABILITY
     Route: 048
     Dates: start: 20090725, end: 20140227
  8. RISPERDAL [Suspect]
     Active Substance: RISPERIDONE
     Indication: FOETAL ALCOHOL SYNDROME
     Route: 048
     Dates: end: 201402
  9. RISPERDAL [Suspect]
     Active Substance: RISPERIDONE
     Indication: AGGRESSION
     Route: 048
     Dates: start: 20090220, end: 20090609
  10. RISPERIDONE. [Suspect]
     Active Substance: RISPERIDONE
     Indication: FOETAL ALCOHOL SYNDROME
     Route: 048
     Dates: start: 20090725, end: 20140227
  11. RISPERDAL [Suspect]
     Active Substance: RISPERIDONE
     Indication: FOETAL ALCOHOL SYNDROME
     Route: 048
     Dates: start: 20090220, end: 20090609
  12. RISPERIDONE. [Suspect]
     Active Substance: RISPERIDONE
     Indication: PRODUCT USED FOR UNKNOWN INDICATION
     Route: 048
  13. RISPERDAL [Suspect]
     Active Substance: RISPERIDONE
     Indication: ATTENTION DEFICIT/HYPERACTIVITY DISORDER
     Route: 048
     Dates: start: 20090220, end: 20090609
  14. RISPERDAL [Suspect]
     Active Substance: RISPERIDONE
     Indication: LEARNING DISABILITY
     Route: 048
     Dates: start: 20090220, end: 20090609

REACTIONS (6)
  - Gynaecomastia [Recovering/Resolving]
  - Product use in unapproved indication [Unknown]
  - Weight increased [Unknown]
  - Emotional disorder [Unknown]
  - Treatment noncompliance [Unknown]
  - Off label use [Unknown]

NARRATIVE: CASE EVENT DATE: 20090725
